FAERS Safety Report 9438557 (Version 1)
Quarter: 2013Q3

REPORT INFORMATION
  Report Type: Spontaneous
  Country: US (occurrence: US)
  Receive Date: 20130802
  Receipt Date: 20130802
  Transmission Date: 20140515
  Serious: Yes (Death)
  Sender: FDA-Public Use
  Company Number: US-CELGENEUS-163-21880-13074581

PATIENT
  Age: 65 Year
  Sex: Male
  Weight: 72.64 kg

DRUGS (6)
  1. REVLIMID [Suspect]
     Indication: CHRONIC LYMPHOCYTIC LEUKAEMIA
     Dosage: 25 MILLIGRAM
     Route: 048
     Dates: start: 20130708, end: 20130722
  2. LORTAB [Concomitant]
     Indication: PRODUCT USED FOR UNKNOWN INDICATION
     Dosage: 7.5MG/32 5MG
     Route: 048
  3. MEGACE ES [Concomitant]
     Indication: PRODUCT USED FOR UNKNOWN INDICATION
     Dosage: 625MG/5ML
     Route: 065
  4. RESTORIL [Concomitant]
     Indication: PRODUCT USED FOR UNKNOWN INDICATION
     Dosage: 15 MILLIGRAM
     Route: 065
  5. ZOFRAN [Concomitant]
     Indication: NAUSEA
     Route: 065
  6. ATOVAQUONE [Concomitant]
     Indication: PRODUCT USED FOR UNKNOWN INDICATION
     Dosage: 750MG/5ML  2TSP
     Route: 065

REACTIONS (1)
  - Cardiopulmonary failure [Fatal]
